FAERS Safety Report 6800896-X (Version None)
Quarter: 2010Q2

REPORT INFORMATION
  Report Type: 
  Country: None (occurrence: None)
  Receive Date: 20100624
  Receipt Date: 20100609
  Transmission Date: 20101027
  Serious: Yes (Disabling)
  Sender: FDA-Public Use
  Company Number: GB-DEXPHARM-20100831

PATIENT
  Age: 50 Year
  Sex: Female
  Weight: 70 kg

DRUGS (2)
  1. OMEPRAZOLE [Suspect]
     Indication: NAUSEA
     Route: 048
     Dates: start: 20100320, end: 20100410
  2. LANSOPRAZOLE [Suspect]
     Indication: NAUSEA
     Route: 048
     Dates: start: 20100320, end: 20100414

REACTIONS (3)
  - EMOTIONAL DISORDER [None]
  - PHOTOSENSITIVITY REACTION [None]
  - SKIN REACTION [None]
